FAERS Safety Report 11593694 (Version 3)
Quarter: 2015Q4

REPORT INFORMATION
  Report Type: Spontaneous
  Country: JP (occurrence: JP)
  Receive Date: 20151005
  Receipt Date: 20151222
  Transmission Date: 20160304
  Serious: Yes (Other)
  Sender: FDA-Public Use
  Company Number: JP-GLAXOSMITHKLINE-JP2015JPN094948

PATIENT
  Age: 87 Year
  Sex: Male
  Weight: 66 kg

DRUGS (14)
  1. BASEN OD [Concomitant]
     Active Substance: VOGLIBOSE
  2. HOKUNALIN TAPE [Concomitant]
     Active Substance: TULOBUTEROL
  3. PHENOBAL [Concomitant]
     Active Substance: PHENOBARBITAL
  4. ATELEC [Concomitant]
     Active Substance: CILNIDIPINE
  5. SERETIDE [Suspect]
     Active Substance: FLUTICASONE FUROATE\SALMETEROL XINAFOATE
     Dosage: UNK
     Route: 055
  6. ZADITEN [Concomitant]
     Active Substance: KETOTIFEN FUMARATE
  7. SERETIDE [Suspect]
     Active Substance: FLUTICASONE FUROATE\SALMETEROL XINAFOATE
     Indication: CHRONIC OBSTRUCTIVE PULMONARY DISEASE
     Dosage: 250 UNK, UNK
     Route: 055
  8. SERETIDE [Suspect]
     Active Substance: FLUTICASONE FUROATE\SALMETEROL XINAFOATE
     Dosage: 250 ?G, BID
     Route: 055
     Dates: start: 20150615, end: 20150627
  9. TERSIGAN [Suspect]
     Active Substance: OXITROPIUM BROMIDE
     Dosage: 1 DF, BID
     Route: 055
     Dates: start: 20150615, end: 20150627
  10. AMARYL [Concomitant]
     Active Substance: GLIMEPIRIDE
  11. FUROSEMIDE. [Concomitant]
     Active Substance: FUROSEMIDE
  12. TERSIGAN [Suspect]
     Active Substance: OXITROPIUM BROMIDE
     Dosage: UNK
     Route: 055
  13. FERROMIA (JAPAN) [Concomitant]
  14. CARDENALIN [Concomitant]
     Active Substance: DOXAZOSIN MESYLATE

REACTIONS (6)
  - Electrocardiogram QT prolonged [Recovering/Resolving]
  - Asthenia [Recovering/Resolving]
  - Decreased activity [Unknown]
  - Bradycardia [Recovering/Resolving]
  - Wrong technique in product usage process [Unknown]
  - Oxygen saturation decreased [Recovering/Resolving]

NARRATIVE: CASE EVENT DATE: 201507
